FAERS Safety Report 9374667 (Version 1)
Quarter: 2013Q2

REPORT INFORMATION
  Report Type: Spontaneous
  Country: US (occurrence: US)
  Receive Date: 20130628
  Receipt Date: 20130628
  Transmission Date: 20140414
  Serious: Yes (Other)
  Sender: FDA-Public Use
  Company Number: CHPA2013US010395

PATIENT
  Age: 15 Year
  Sex: Female

DRUGS (1)
  1. EX-LAX MAX STR LAX PILLS SENNA [Suspect]
     Indication: WEIGHT LOSS DIET
     Dosage: 8 DF, IN LESS THAN 24 HOURS
     Route: 048
     Dates: start: 20130625, end: 20130625

REACTIONS (3)
  - Intentional drug misuse [Unknown]
  - Diarrhoea [Recovering/Resolving]
  - Incorrect dose administered [Unknown]
